FAERS Safety Report 10949006 (Version 1)
Quarter: 2015Q1

REPORT INFORMATION
  Report Type: Report from Study
  Country: AR (occurrence: AR)
  Receive Date: 20150324
  Receipt Date: 20150324
  Transmission Date: 20150721
  Serious: Yes (Hospitalization)
  Sender: FDA-Public Use
  Company Number: AR-PFIZER INC-HQWYE206504DEC06

PATIENT
  Age: 55 Year
  Sex: Female
  Weight: 80 kg

DRUGS (3)
  1. BAZEDOXIFENE ACETATE/EQUILIN SULFATE SODIUM/ESTRONE SODIUM SULFATE [Suspect]
     Active Substance: BAZEDOXIFENE ACETATE\ESTROGENS, CONJUGATED
     Indication: OSTEOPOROSIS
     Dosage: 1 DF, 1X/DAY
     Route: 048
     Dates: start: 20070105, end: 20070122
  2. BAZEDOXIFENE ACETATE/EQUILIN SULFATE SODIUM/ESTRONE SODIUM SULFATE [Suspect]
     Active Substance: BAZEDOXIFENE ACETATE\ESTROGENS, CONJUGATED
     Indication: ENDOMETRIAL HYPERPLASIA
     Dosage: 1 DF, 1X/DAY
     Route: 048
     Dates: start: 20060523, end: 20061118
  3. BAZEDOXIFENE ACETATE/EQUILIN SULFATE SODIUM/ESTRONE SODIUM SULFATE [Suspect]
     Active Substance: BAZEDOXIFENE ACETATE\ESTROGENS, CONJUGATED
     Indication: PROPHYLAXIS

REACTIONS (2)
  - Cholecystitis [Recovered/Resolved]
  - Cholecystitis acute [None]

NARRATIVE: CASE EVENT DATE: 20061118
